FAERS Safety Report 5110927-3 (Version None)
Quarter: 2006Q3

REPORT INFORMATION
  Report Type: 
  Country: None (occurrence: None)
  Receive Date: 20060919
  Receipt Date: 20060908
  Transmission Date: 20061208
  Serious: Yes (Death, Hospitalization, Other)
  Sender: FDA-Public Use
  Company Number: MEDI-0004704

PATIENT
  Sex: 0
  Weight: 3.38 kg

DRUGS (1)
  1. SYNAGIS [Suspect]
     Indication: ANTIVIRAL PROPHYLAXIS
     Dosage: 50 MG, INTRAMUSCULAR
     Route: 030
     Dates: start: 20051027, end: 20051027

REACTIONS (5)
  - CARDIAC DISORDER [None]
  - HYPOTONIA NEONATAL [None]
  - NEONATAL DISORDER [None]
  - PALLOR [None]
  - SOMNOLENCE NEONATAL [None]
